FAERS Safety Report 17386725 (Version 3)
Quarter: 2020Q3

REPORT INFORMATION
  Report Type: Spontaneous
  Country: GB (occurrence: GB)
  Receive Date: 20200206
  Receipt Date: 20200826
  Transmission Date: 20201102
  Serious: Yes (Other)
  Sender: FDA-Public Use
  Company Number: GB-B.I. PHARMACEUTICALS,INC./RIDGEFIELD-2020-12-005404

PATIENT
  Age: 65 Year
  Sex: Female

DRUGS (3)
  1. SIFROL [Suspect]
     Active Substance: PRAMIPEXOLE
     Dosage: 2 DOSAGE FORM, QD (HIGH DOSE)
     Route: 065
     Dates: start: 2014
  2. SIFROL [Suspect]
     Active Substance: PRAMIPEXOLE
     Indication: RESTLESS LEGS SYNDROME
     Dosage: 2 DOSAGE FORM, QD (HIGH DOSE)
     Route: 065
     Dates: end: 2019
  3. SIFROL [Suspect]
     Active Substance: PRAMIPEXOLE
     Dosage: UNK
     Route: 065

REACTIONS (8)
  - Depression [Not Recovered/Not Resolved]
  - Drug ineffective [Unknown]
  - Pain [Not Recovered/Not Resolved]
  - Gambling disorder [Not Recovered/Not Resolved]
  - Loss of personal independence in daily activities [Not Recovered/Not Resolved]
  - Withdrawal syndrome [Not Recovered/Not Resolved]
  - Suicidal ideation [Not Recovered/Not Resolved]
  - Reading disorder [Not Recovered/Not Resolved]

NARRATIVE: CASE EVENT DATE: 2014
